FAERS Safety Report 7123814-6 (Version None)
Quarter: 2010Q4

REPORT INFORMATION
  Report Type: 
  Country: None (occurrence: None)
  Receive Date: 20101125
  Receipt Date: 20101117
  Transmission Date: 20110411
  Serious: Yes (Death, Hospitalization)
  Sender: FDA-Public Use
  Company Number: PHHY2010DE75716

PATIENT
  Sex: Male
  Weight: 92 kg

DRUGS (6)
  1. ALISKIREN ALI+ [Suspect]
     Indication: HYPERTENSION
     Dosage: UNK
     Dates: start: 20081023, end: 20090804
  2. CALCIUM CHANNEL BLOCKERS [Concomitant]
  3. DIURETICS [Concomitant]
     Dosage: UNK
     Dates: start: 20090804
  4. CARMEN [Concomitant]
     Indication: HYPERTENSION
     Dosage: 20 (UNSPECIFIED UNITS)/DAY
     Route: 048
     Dates: start: 20080714, end: 20100113
  5. METFORMIN [Concomitant]
     Indication: DIABETES MELLITUS
     Dosage: 100 (UNSPECIFIED UNITS)/DAY
     Route: 048
     Dates: start: 20090811, end: 20100113
  6. PANTOPRAZOLE [Concomitant]
     Indication: REFLUX OESOPHAGITIS
     Dosage: 40 (UNSPECIFIED UNITS)/DAY
     Route: 048
     Dates: start: 20090911, end: 20100220

REACTIONS (1)
  - GLIOBLASTOMA [None]
